FAERS Safety Report 8597571-0 (Version None)
Quarter: 2012Q3

REPORT INFORMATION
  Report Type: 
  Country: None (occurrence: None)
  Receive Date: 20120816
  Receipt Date: 20120805
  Transmission Date: 20120928
  Serious: Yes (Hospitalization)
  Sender: FDA-Public Use
  Company Number: IL-NOVOPROD-353956

PATIENT
  Age: 61 Year
  Sex: Male
  Weight: 113 kg

DRUGS (5)
  1. VICTOZA [Suspect]
     Dosage: 3.0 MG, QD
     Route: 058
     Dates: start: 20120504, end: 20120514
  2. VICTOZA [Suspect]
     Dosage: 3.0 MG, QD
     Route: 058
     Dates: start: 20120522
  3. METFORMIN HCL [Concomitant]
     Indication: TYPE 2 DIABETES MELLITUS
     Dosage: 850 MG, TID
     Route: 048
  4. VICTOZA [Suspect]
     Indication: OBESITY
     Dosage: 0.6 MG, QD
     Route: 058
     Dates: start: 20110829
  5. VICTOZA [Suspect]
     Indication: TYPE 2 DIABETES MELLITUS
     Dosage: 3.0 MG, QD
     Route: 058
     Dates: start: 20110926, end: 20120429

REACTIONS (1)
  - BILE DUCT OBSTRUCTION [None]
